FAERS Safety Report 17967390 (Version 1)
Quarter: 2020Q3

REPORT INFORMATION
  Report Type: Spontaneous
  Country: IT (occurrence: IT)
  Receive Date: 20200701
  Receipt Date: 20200701
  Transmission Date: 20201103
  Serious: Yes (Hospitalization)
  Sender: FDA-Public Use
  Company Number: NVSC2020IT181552

PATIENT
  Age: 71 Year
  Sex: Female

DRUGS (2)
  1. VIVIN C [Suspect]
     Active Substance: ASCORBIC ACID\ASPIRIN
     Indication: INFLUENZA
     Dosage: UNK
     Route: 048
     Dates: start: 20200220, end: 20200221
  2. VOLTAREN [Suspect]
     Active Substance: DICLOFENAC SODIUM
     Indication: BACK PAIN
     Dosage: UNK
     Route: 030
     Dates: start: 20200220

REACTIONS (4)
  - Duodenal ulcer haemorrhage [Not Recovered/Not Resolved]
  - Melaena [Not Recovered/Not Resolved]
  - Muscular weakness [Not Recovered/Not Resolved]
  - Haematemesis [Not Recovered/Not Resolved]

NARRATIVE: CASE EVENT DATE: 20200221
